FAERS Safety Report 4920811-3 (Version None)
Quarter: 2006Q1

REPORT INFORMATION
  Report Type: 
  Country: None (occurrence: None)
  Receive Date: 20060217
  Receipt Date: 20060207
  Transmission Date: 20060701
  Serious: Yes (Hospitalization)
  Sender: FDA-Public Use
  Company Number: GXBR2006US00597

PATIENT
  Age: 45 Year
  Sex: Male

DRUGS (2)
  1. LORATADINE [Suspect]
     Dosage: ONCE/SINGLE, ORAL
     Route: 049
     Dates: start: 20060205, end: 20060205
  2. ETHANOL (ETHANOL) [Suspect]
     Dosage: ORAL
     Route: 048

REACTIONS (3)
  - COMA [None]
  - CONVULSION [None]
  - OVERDOSE [None]
